FAERS Safety Report 6572684-3 (Version None)
Quarter: 2010Q1

REPORT INFORMATION
  Report Type: 
  Country: None (occurrence: None)
  Receive Date: 20100205
  Receipt Date: 20100122
  Transmission Date: 20100710
  Serious: Yes (Life-Threatening, Hospitalization)
  Sender: FDA-Public Use
  Company Number: NL-TYCO HEALTHCARE/MALLINCKRODT-T201000539

PATIENT
  Age: 48 Year
  Sex: Male

DRUGS (1)
  1. PENNSAID [Suspect]
     Dosage: 50 MG, UNK
     Route: 048

REACTIONS (1)
  - KOUNIS SYNDROME [None]
